FAERS Safety Report 6154436-1 (Version None)
Quarter: 2009Q2

REPORT INFORMATION
  Report Type: 
  Country: None (occurrence: None)
  Receive Date: 20090414
  Receipt Date: 20090409
  Transmission Date: 20091009
  Serious: Yes (Hospitalization)
  Sender: FDA-Public Use
  Company Number: US-MERCK-0902USA02460

PATIENT
  Age: 74 Year
  Sex: Female

DRUGS (4)
  1. FOSAMAX [Suspect]
     Indication: OSTEOPOROSIS
     Route: 048
     Dates: start: 20020101
  2. LISINOPRIL [Concomitant]
     Route: 065
  3. METOPROLOL [Concomitant]
     Route: 065
  4. ASPIRIN [Concomitant]
     Route: 065

REACTIONS (2)
  - ATRIAL FIBRILLATION [None]
  - CARDIAC DISORDER [None]
